FAERS Safety Report 13746914 (Version 4)
Quarter: 2017Q3

REPORT INFORMATION
  Report Type: Spontaneous
  Country: JP (occurrence: JP)
  Receive Date: 20170712
  Receipt Date: 20170818
  Transmission Date: 20171127
  Serious: Yes (Other)
  Sender: FDA-Public Use
  Company Number: PHHY2017JP100117

PATIENT
  Age: 61 Year
  Sex: Female

DRUGS (4)
  1. INFLIXIMAB [Suspect]
     Active Substance: INFLIXIMAB
     Indication: STILL^S DISEASE
     Dosage: 3 MG/KG/8WEEKS
     Route: 065
  2. CICLOSPORIN [Suspect]
     Active Substance: CYCLOSPORINE
     Indication: STILL^S DISEASE
     Route: 065
  3. PREDNISOLONE. [Concomitant]
     Active Substance: PREDNISOLONE
     Indication: STILL^S DISEASE
     Dosage: INITIAL DOSE, 30 MG, QD
     Route: 065
     Dates: start: 201201
  4. METHOTREXATE. [Suspect]
     Active Substance: METHOTREXATE
     Indication: STILL^S DISEASE
     Dosage: 6 MG, QW
     Route: 065
     Dates: start: 201201

REACTIONS (4)
  - Serum ferritin increased [Unknown]
  - Liver function test abnormal [Unknown]
  - Leukocytosis [Unknown]
  - C-reactive protein increased [Unknown]
